FAERS Safety Report 22115528 (Version 2)
Quarter: 2023Q2

REPORT INFORMATION
  Report Type: Report from Study
  Country: US (occurrence: US)
  Receive Date: 20230320
  Receipt Date: 20230407
  Transmission Date: 20230722
  Serious: Yes (Other)
  Sender: FDA-Public Use
  Company Number: US-GILEAD-2023-0620510

PATIENT
  Sex: Female

DRUGS (9)
  1. AZTREONAM LYSINE [Suspect]
     Active Substance: AZTREONAM LYSINE
     Indication: Cystic fibrosis
     Dosage: 75 MG, TID
     Route: 055
  2. GENOTROPIN [Suspect]
     Active Substance: SOMATROPIN
     Indication: Product used for unknown indication
     Route: 065
  3. PULMOZYME [Concomitant]
     Active Substance: DORNASE ALFA
  4. TOBI [Concomitant]
     Active Substance: TOBRAMYCIN
  5. URSODIOL [Concomitant]
     Active Substance: URSODIOL
  6. OMEPRAZOLE [Concomitant]
     Active Substance: OMEPRAZOLE
  7. ZENPEP [Concomitant]
     Active Substance: PANCRELIPASE AMYLASE\PANCRELIPASE LIPASE\PANCRELIPASE PROTEASE
  8. ALBUTEROL SULFATE [Concomitant]
     Active Substance: ALBUTEROL SULFATE
  9. INSULIN NOS [Concomitant]
     Active Substance: INSULIN NOS

REACTIONS (2)
  - Autism spectrum disorder [Unknown]
  - Hormone level abnormal [Unknown]
